FAERS Safety Report 6154227-1 (Version None)
Quarter: 2009Q2

REPORT INFORMATION
  Report Type: 
  Country: None (occurrence: None)
  Receive Date: 20090414
  Receipt Date: 20090408
  Transmission Date: 20091009
  Serious: Yes (Hospitalization, Other)
  Sender: FDA-Public Use
  Company Number: US-AVENTIS-200912982US

PATIENT
  Sex: Female

DRUGS (6)
  1. LANTUS [Suspect]
     Route: 058
     Dates: start: 20060101
  2. OPTICLIK (INSULIN INJECTION PEN) [Suspect]
     Dates: start: 20060101
  3. AVANDIA [Concomitant]
  4. LIPITOR [Concomitant]
  5. PRIMIDONE [Concomitant]
     Indication: TREMOR
  6. UNKNOWN DRUG [Concomitant]
     Dosage: DOSE: UNK
     Route: 055

REACTIONS (4)
  - AMNESIA [None]
  - CEREBROVASCULAR ACCIDENT [None]
  - COMA [None]
  - MENINGITIS BACTERIAL [None]
